FAERS Safety Report 10445453 (Version 2)
Quarter: 2014Q3

REPORT INFORMATION
  Report Type: Spontaneous
  Country: US (occurrence: US)
  Receive Date: 20140908
  Receipt Date: 20140908
  Transmission Date: 20150326
  Serious: Yes (Life-Threatening, Other)
  Sender: FDA-Public Use
  Company Number: US-BRISTOL-MYERS SQUIBB COMPANY-19467174

PATIENT
  Age: 56 Year
  Sex: Female
  Weight: 72.56 kg

DRUGS (7)
  1. LITHIUM [Concomitant]
     Active Substance: LITHIUM CARBONATE
  2. LITHIUM CARBONATE. [Concomitant]
     Active Substance: LITHIUM CARBONATE
     Dosage: 27SEP2013:300MG/DAY CAPS
     Dates: start: 20130812
  3. NEURONTIN [Concomitant]
     Active Substance: GABAPENTIN
  4. NEURONTIN [Concomitant]
     Active Substance: GABAPENTIN
     Dosage: 1CAP
     Dates: start: 20120907
  5. DITROPAN XL [Concomitant]
     Active Substance: OXYBUTYNIN CHLORIDE
     Dosage: TABS
     Dates: start: 20130503
  6. ABILIFY [Suspect]
     Active Substance: ARIPIPRAZOLE
     Indication: BIPOLAR DISORDER
     Dates: start: 20130911
  7. LEVOXYL [Concomitant]
     Active Substance: LEVOTHYROXINE SODIUM
     Dosage: TABS

REACTIONS (2)
  - Suicidal ideation [Unknown]
  - Depression [Unknown]
